FAERS Safety Report 5450612-1 (Version None)
Quarter: 2007Q3

REPORT INFORMATION
  Report Type: 
  Country: None (occurrence: None)
  Receive Date: 20070912
  Receipt Date: 20070903
  Transmission Date: 20080115
  Serious: Yes (Disabling, Other)
  Sender: FDA-Public Use
  Company Number: GB-MERCK-0709GBR00013

PATIENT
  Age: 74 Year
  Sex: Female

DRUGS (14)
  1. SINGULAIR [Suspect]
     Indication: ASTHMA
     Route: 048
     Dates: start: 20070801, end: 20070803
  2. ASPIRIN [Concomitant]
     Route: 065
  3. ATORVASTATIN [Concomitant]
     Route: 065
  4. BENDROFLUMETHIAZIDE [Concomitant]
     Route: 065
  5. BETAHISTINE MALEATE [Concomitant]
     Route: 065
  6. FUROSEMIDE [Concomitant]
     Route: 065
  7. HUMALOG [Concomitant]
     Route: 065
  8. INSULIN GLARGINE [Concomitant]
     Route: 065
  9. PRILOSEC [Concomitant]
     Route: 065
  10. METFORMIN [Concomitant]
     Route: 065
  11. RAMIPRIL [Concomitant]
     Route: 065
  12. BUDESONIDE AND FORMOTEROL FUMARATE [Concomitant]
     Indication: ASTHMA
  13. TERBUTALINE SULFATE [Concomitant]
  14. VALSARTAN [Concomitant]
     Route: 065

REACTIONS (3)
  - DYSPHAGIA [None]
  - INCREASED UPPER AIRWAY SECRETION [None]
  - PHARYNGEAL OEDEMA [None]
